FAERS Safety Report 9916037 (Version 1)
Quarter: 2014Q1

REPORT INFORMATION
  Report Type: Spontaneous
  Country: US (occurrence: None)
  Receive Date: 20140219
  Receipt Date: 20140219
  Transmission Date: 20141002
  Serious: Yes (Disabling)
  Sender: FDA-Public Use
  Company Number: None

PATIENT
  Age: 28 Year
  Sex: Female
  Weight: 72.58 kg

DRUGS (1)
  1. MIRENA [Suspect]
     Dates: start: 20090916

REACTIONS (5)
  - Embedded device [None]
  - Haemorrhage [None]
  - Pelvic pain [None]
  - Urinary tract infection [None]
  - Back pain [None]
